FAERS Safety Report 4467292-4 (Version None)
Quarter: 2004Q4

REPORT INFORMATION
  Report Type: 
  Country: None (occurrence: None)
  Receive Date: 20041006
  Receipt Date: 20040211
  Transmission Date: 20050328
  Serious: Yes (Death, Hospitalization)
  Sender: FDA-Public Use
  Company Number: FR-GLAXOSMITHKLINE-B0325592A

PATIENT
  Age: 80 Year
  Sex: Male

DRUGS (1)
  1. SERETIDE [Suspect]
     Dosage: 500MCG TWICE PER DAY
     Route: 055

REACTIONS (4)
  - APHONIA [None]
  - HOARSENESS [None]
  - PULMONARY EMBOLISM [None]
  - THROAT IRRITATION [None]
